FAERS Safety Report 9143613 (Version 2)
Quarter: 2013Q1

REPORT INFORMATION
  Report Type: Report from Study
  Country: FR (occurrence: FR)
  Receive Date: 20130306
  Receipt Date: 20130325
  Transmission Date: 20140127
  Serious: Yes (Other)
  Sender: FDA-Public Use
  Company Number: FR-PFIZER INC-2013074880

PATIENT
  Sex: 0
  Weight: 1.48 kg

DRUGS (1)
  1. ATENOLOL [Suspect]
     Dosage: 100 MG, DAILY
     Route: 064

REACTIONS (3)
  - Maternal exposure during pregnancy [Unknown]
  - Foetal heart rate abnormal [Unknown]
  - Premature baby [Unknown]
